FAERS Safety Report 7691817 (Version 3)
Quarter: 2014Q4

REPORT INFORMATION
  Report Type: Spontaneous
  Country: FR (occurrence: FR)
  Receive Date: 20101203
  Receipt Date: 20141021
  Transmission Date: 20150529
  Serious: Yes (Hospitalization, Other)
  Sender: FDA-Public Use
  Company Number: FR-ELI_LILLY_AND_COMPANY-FR201011005442

PATIENT
  Age: 33 Year
  Sex: Female

DRUGS (18)
  1. ZYPREXA [Suspect]
     Active Substance: OLANZAPINE
     Dosage: 30 MG, DAILY (1/D)
     Route: 048
     Dates: start: 20101007
  2. ZYPREXA [Suspect]
     Active Substance: OLANZAPINE
     Indication: PRODUCT USED FOR UNKNOWN INDICATION
     Dosage: 30 MG, QD
     Route: 065
     Dates: start: 20101012
  3. ZYPREXA [Suspect]
     Active Substance: OLANZAPINE
     Indication: PRODUCT USED FOR UNKNOWN INDICATION
     Dosage: 10 MG, UNKNOWN
     Route: 030
     Dates: start: 20140721
  4. IMOVANE [Concomitant]
     Active Substance: ZOPICLONE
  5. HAVLANE [Concomitant]
     Active Substance: LOPRAZOLAM
  6. GRANOCYTE 34 [Concomitant]
     Active Substance: LENOGRASTIM
  7. DEROXAT [Concomitant]
     Active Substance: PAROXETINE HYDROCHLORIDE
  8. XANAX [Concomitant]
     Active Substance: ALPRAZOLAM
  9. LARGACTIL [Concomitant]
     Active Substance: CHLORPROMAZINE
     Indication: SCHIZOAFFECTIVE DISORDER
     Dosage: 75 MG, UNK
     Dates: start: 20100920
  10. NOCTAMIDE [Concomitant]
     Active Substance: LORMETAZEPAM
  11. ZYPREXA [Suspect]
     Active Substance: OLANZAPINE
     Dosage: 20 MG, DAILY (1/D)
     Route: 048
     Dates: start: 20100808
  12. RIVOTRIL [Concomitant]
     Active Substance: CLONAZEPAM
     Dosage: 2 MG, UNK
     Dates: start: 20100901
  13. CIRCADIN [Concomitant]
     Active Substance: MELATONIN
  14. TERCIAN [Concomitant]
     Active Substance: CYAMEMAZINE
  15. ZYPREXA [Suspect]
     Active Substance: OLANZAPINE
     Indication: MAJOR DEPRESSION
     Dosage: 1 DF, UNKNOWN
     Route: 065
     Dates: end: 201003
  16. ZYPREXA [Suspect]
     Active Substance: OLANZAPINE
     Dosage: 10 MG, BID
     Route: 048
     Dates: start: 20140721
  17. THERALENE [Concomitant]
     Active Substance: TRIMEPRAZINE
     Dosage: 30 MG, UNK
     Dates: start: 20100906
  18. LARGACTIL [Concomitant]
     Active Substance: CHLORPROMAZINE
     Dosage: UNK
     Dates: start: 20101012

REACTIONS (5)
  - Neutropenia [Unknown]
  - Neutropenia [Not Recovered/Not Resolved]
  - Prescribed overdose [Unknown]
  - Weight increased [Unknown]
  - Prescribed overdose [Unknown]

NARRATIVE: CASE EVENT DATE: 20100901
